FAERS Safety Report 21374090 (Version 3)
Quarter: 2023Q1

REPORT INFORMATION
  Report Type: Spontaneous
  Country: DE (occurrence: DE)
  Receive Date: 20220926
  Receipt Date: 20230220
  Transmission Date: 20230418
  Serious: Yes (Hospitalization, Other)
  Sender: FDA-Public Use
  Company Number: None

PATIENT
  Age: 83 Year
  Sex: Female
  Weight: 70 kg

DRUGS (10)
  1. AMLODIPINE BESYLATE [Interacting]
     Active Substance: AMLODIPINE BESYLATE
     Indication: Product used for unknown indication
     Dosage: 10 MILLIGRAM, QD, EVERY 1 DAY (TABLET)
     Route: 048
  2. PREGABALIN [Interacting]
     Active Substance: PREGABALIN
     Indication: Product used for unknown indication
     Dosage: 100 MILLIGRAM, QD (EVERY 1 DAY), CAPSULE
     Route: 048
  3. BISOPROLOL [Interacting]
     Active Substance: BISOPROLOL
     Indication: Product used for unknown indication
     Dosage: 10 MILLIGRAM, QD,   (EVERY 1 DAY)
     Route: 048
  4. BRIVUDINE [Interacting]
     Active Substance: BRIVUDINE
     Indication: Product used for unknown indication
     Dosage: 125 MILLIGRAM, QD ( EVERY 1 DAY)
     Route: 048
  5. CANDESARTAN [Interacting]
     Active Substance: CANDESARTAN
     Indication: Product used for unknown indication
     Dosage: 32 MILLIGRAM, QD, (EVERY 1 DAY)
     Route: 048
  6. MIRTAZAPINE [Interacting]
     Active Substance: MIRTAZAPINE
     Indication: Product used for unknown indication
     Dosage: 30 MILLIGRAM, QD ( EVERY 1 DAY)
     Route: 048
  7. TORSEMIDE [Interacting]
     Active Substance: TORSEMIDE
     Indication: Product used for unknown indication
     Dosage: 5 MILLIGRAM, QD ( EVERY 1 DAY)
     Route: 048
  8. ATORVASTATIN [Concomitant]
     Active Substance: ATORVASTATIN
     Indication: Product used for unknown indication
     Dosage: 40 MILLIGRAM, QD ( EVERY 1 DAY)
     Route: 048
  9. EDOXABAN [Concomitant]
     Active Substance: EDOXABAN
     Indication: Product used for unknown indication
     Dosage: 60 MILLIGRAM, QD ( EVERY 1 DAY)
     Route: 048
  10. METAMIZOL [Concomitant]
     Active Substance: METAMIZOLE SODIUM
     Indication: Product used for unknown indication
     Dosage: 500 MILLIGRAM
     Route: 048

REACTIONS (10)
  - Acute kidney injury [Unknown]
  - Hypokalaemia [Unknown]
  - Systemic infection [Unknown]
  - Dyspnoea [Unknown]
  - Hyponatraemia [Unknown]
  - Hypertension [Unknown]
  - Herpes zoster [Unknown]
  - Oedema peripheral [Unknown]
  - Tremor [Unknown]
  - Tachycardia [Unknown]
